FAERS Safety Report 6247282-1 (Version None)
Quarter: 2009Q2

REPORT INFORMATION
  Report Type: 
  Country: None (occurrence: None)
  Receive Date: 20090626
  Receipt Date: 20090619
  Transmission Date: 20091009
  Serious: Yes (Life-Threatening, Hospitalization, Other)
  Sender: FDA-Public Use
  Company Number: A0787116A

PATIENT
  Age: 41 Year
  Weight: 103.6 kg

DRUGS (6)
  1. PROMACTA [Suspect]
     Indication: IDIOPATHIC THROMBOCYTOPENIC PURPURA
     Dosage: 75MG PER DAY
     Route: 048
     Dates: start: 20090326, end: 20090520
  2. COUMADIN [Concomitant]
     Route: 048
  3. SYNTHROID [Concomitant]
     Route: 048
  4. CALCIUM [Concomitant]
     Route: 048
  5. MAGNESIUM SULFATE [Concomitant]
     Route: 048
  6. GLUCOSAMINE [Concomitant]
     Route: 048

REACTIONS (1)
  - PULMONARY EMBOLISM [None]
